FAERS Safety Report 7111469 (Version 6)
Quarter: 2017Q1

REPORT INFORMATION
  Report Type: Spontaneous
  Country: GB (occurrence: GB)
  Receive Date: 20090911
  Receipt Date: 20170202
  Transmission Date: 20170429
  Serious: Yes (Death, Hospitalization, Other)
  Sender: FDA-Public Use
  Company Number: GB-JNJFOC-20090802409

PATIENT
  Age: 82 Year
  Sex: Female

DRUGS (5)
  1. ASPIRIN. [Suspect]
     Active Substance: ASPIRIN
     Indication: PRODUCT USED FOR UNKNOWN INDICATION
     Route: 065
  2. CO-AMILOFRUSE [Suspect]
     Active Substance: AMILORIDE\FUROSEMIDE
     Indication: PRODUCT USED FOR UNKNOWN INDICATION
     Route: 065
  3. COCODAMOL [Suspect]
     Active Substance: ACETAMINOPHEN\CODEINE PHOSPHATE
     Indication: INTENTIONAL OVERDOSE
     Route: 048
  4. CALCICHEW D3 FORTE [Suspect]
     Active Substance: CALCIUM\CHOLECALCIFEROL
     Indication: PRODUCT USED FOR UNKNOWN INDICATION
     Route: 048
  5. MOTRIN [Suspect]
     Active Substance: IBUPROFEN
     Indication: INTENTIONAL OVERDOSE
     Route: 048

REACTIONS (6)
  - Prothrombin level increased [Unknown]
  - Vascular malformation [Fatal]
  - Alanine aminotransferase increased [Unknown]
  - Intentional overdose [Fatal]
  - Completed suicide [Fatal]
  - Blood alkaline phosphatase increased [Unknown]
